FAERS Safety Report 7535248-0 (Version None)
Quarter: 2011Q2

REPORT INFORMATION
  Report Type: 
  Country: None (occurrence: None)
  Receive Date: 20110609
  Receipt Date: 20071130
  Transmission Date: 20111010
  Serious: Yes (Death)
  Sender: FDA-Public Use
  Company Number: PHHY2007NL00676

PATIENT
  Age: 53 Year
  Sex: Male

DRUGS (1)
  1. EXFORGE [Suspect]

REACTIONS (4)
  - DEATH [None]
  - HEART RATE INCREASED [None]
  - BLOOD PRESSURE INCREASED [None]
  - BLOOD GLUCOSE INCREASED [None]
